FAERS Safety Report 14979308 (Version 2)
Quarter: 2018Q3

REPORT INFORMATION
  Report Type: Report from Study
  Country: US (occurrence: US)
  Receive Date: 20180606
  Receipt Date: 20180717
  Transmission Date: 20181010
  Serious: No
  Sender: FDA-Public Use
  Company Number: PHEH2018US022011

PATIENT
  Sex: Female

DRUGS (1)
  1. COSENTYX [Suspect]
     Active Substance: SECUKINUMAB
     Indication: PSORIASIS
     Dosage: 300 MG, QMO
     Route: 058

REACTIONS (6)
  - Injection site pain [Unknown]
  - Skin exfoliation [Unknown]
  - Pain of skin [Unknown]
  - Drug effect incomplete [Unknown]
  - Product storage error [Unknown]
  - Skin haemorrhage [Unknown]
